FAERS Safety Report 5953334-3 (Version None)
Quarter: 2008Q4

REPORT INFORMATION
  Report Type: 
  Country: None (occurrence: None)
  Receive Date: 20081114
  Receipt Date: 20081111
  Transmission Date: 20090506
  Serious: No
  Sender: FDA-Public Use
  Company Number: ZA-B.I. PHARMACEUTICALS,INC./RIDGEFIELD-2008-BP-15706BP

PATIENT
  Sex: Female

DRUGS (3)
  1. VIRAMUNE [Suspect]
     Indication: PROPHYLAXIS AGAINST HIV INFECTION
     Route: 048
     Dates: start: 20080908
  2. VIRAMUNE [Suspect]
     Route: 048
     Dates: start: 20080916
  3. AZT [Concomitant]
     Indication: ANTIRETROVIRAL THERAPY
     Dates: start: 20080804, end: 20080810

REACTIONS (1)
  - NORMOCHROMIC NORMOCYTIC ANAEMIA [None]
